FAERS Safety Report 7109021-1 (Version None)
Quarter: 2010Q4

REPORT INFORMATION
  Report Type: 
  Country: None (occurrence: None)
  Receive Date: 20101117
  Receipt Date: 20101105
  Transmission Date: 20110411
  Serious: No
  Sender: FDA-Public Use
  Company Number: US-ELI_LILLY_AND_COMPANY-US201011001980

PATIENT
  Sex: Male

DRUGS (2)
  1. CIALIS [Suspect]
     Indication: ERECTILE DYSFUNCTION
     Dosage: 5 MG, DAILY (1/D)
  2. CIALIS [Suspect]
     Dosage: 10 MG, QOD

REACTIONS (3)
  - ABNORMAL SENSATION IN EYE [None]
  - DIPLOPIA [None]
  - VISION BLURRED [None]
